FAERS Safety Report 5824911-5 (Version None)
Quarter: 2008Q3

REPORT INFORMATION
  Report Type: 
  Country: None (occurrence: None)
  Receive Date: 20080728
  Receipt Date: 20080717
  Transmission Date: 20090109
  Serious: Yes (Hospitalization, Other)
  Sender: FDA-Public Use
  Company Number: GB-PFIZER INC-2007051162

PATIENT
  Age: 55 Year
  Sex: Female
  Weight: 60 kg

DRUGS (22)
  1. GABAPENTIN [Interacting]
     Indication: NEURALGIA
     Route: 048
     Dates: start: 20050501, end: 20061112
  2. GABAPENTIN [Interacting]
     Indication: MUSCULOSKELETAL PAIN
  3. GABAPENTIN [Interacting]
  4. FENTANYL-100 [Interacting]
     Indication: GENERAL ANAESTHESIA
     Route: 042
     Dates: start: 20050701, end: 20050701
  5. FENTANYL-100 [Interacting]
     Indication: OSTEOTOMY
     Dates: start: 20060601, end: 20061201
  6. ISOFLURANE [Interacting]
     Indication: GENERAL ANAESTHESIA
     Route: 055
     Dates: start: 20060601, end: 20060601
  7. ISOFLURANE [Interacting]
     Indication: VARICOSE VEIN OPERATION
  8. DEXAMETHASONE [Suspect]
     Indication: ANAESTHESIA
     Route: 042
     Dates: start: 20050701, end: 20050701
  9. ALFENTANIL HYDROCHLORIDE [Interacting]
     Indication: ANAESTHESIA
     Route: 042
     Dates: start: 20050701, end: 20061201
  10. ALFENTANIL HYDROCHLORIDE [Interacting]
     Indication: OSTEOTOMY
  11. PROPOFOL [Interacting]
     Indication: GENERAL ANAESTHESIA
     Route: 042
     Dates: start: 20060601, end: 20060601
  12. PROPOFOL [Interacting]
     Indication: OSTEOTOMY
  13. SEVOFLURANE [Interacting]
     Indication: GENERAL ANAESTHESIA
     Route: 055
     Dates: start: 20061201, end: 20061201
  14. CODEINE PHOSPHATE [Concomitant]
     Indication: MUSCULOSKELETAL PAIN
     Route: 048
  15. CODEINE PHOSPHATE [Concomitant]
     Indication: PAIN
  16. ACETAMINOPHEN [Concomitant]
     Indication: PAIN
     Dates: start: 20050501
  17. CODEINE SUL TAB [Concomitant]
  18. OXYGEN [Concomitant]
     Indication: VARICOSE VEIN OPERATION
     Route: 055
  19. ACETAMINOPHEN [Concomitant]
     Indication: MUSCULOSKELETAL PAIN
     Route: 048
  20. ACETAMINOPHEN [Concomitant]
     Indication: ANALGESIA
  21. ALFENTANIL HYDROCHLORIDE [Concomitant]
     Route: 042
     Dates: start: 20050701, end: 20050701
  22. PROPOFOL [Concomitant]
     Dates: start: 20050701, end: 20050701

REACTIONS (6)
  - DRUG INTERACTION [None]
  - DYSTONIA [None]
  - MOVEMENT DISORDER [None]
  - MYOCLONUS [None]
  - MYOTONIA [None]
  - SINUS TACHYCARDIA [None]
